FAERS Safety Report 17938599 (Version 1)
Quarter: 2020Q2

REPORT INFORMATION
  Report Type: Spontaneous
  Country: DE (occurrence: DE)
  Receive Date: 20200625
  Receipt Date: 20200625
  Transmission Date: 20200714
  Serious: Yes (Hospitalization)
  Sender: FDA-Public Use
  Company Number: DE-TEVA-2020-DE-1790626

PATIENT
  Age: 93 Year
  Sex: Female

DRUGS (13)
  1. LACTULOSE. [Concomitant]
     Active Substance: LACTULOSE
     Dosage: 40 ML DAILY; 1-1-0-0
     Route: 048
  2. COLECALCIFEROL (VITAMIN D) [Concomitant]
     Dosage: 1000 IU (INTERNATIONAL UNIT) DAILY; 1-0-0-0
     Route: 048
  3. METOPROLOL. [Suspect]
     Active Substance: METOPROLOL
     Dosage: 95 MILLIGRAM DAILY; 1-0-1-0
     Route: 048
  4. VIDISIC EDO AUGENGEL [Concomitant]
     Active Substance: CARBOMER
     Dosage: NK MG, 6X
  5. METAMIZOL [Concomitant]
     Active Substance: METAMIZOLE SODIUM
     Dosage: 500 MILLIGRAM DAILY; 1-0-0-0
     Route: 048
  6. PANTOPRAZOL [Concomitant]
     Active Substance: PANTOPRAZOLE SODIUM
     Dosage: 40 MILLIGRAM DAILY; 40 MG, 1-0-0-0
     Route: 048
  7. VALSARTAN. [Concomitant]
     Active Substance: VALSARTAN
     Dosage: 80 MILLIGRAM DAILY; 1-0-0-0
     Route: 048
  8. OVESTIN [Concomitant]
     Active Substance: ESTRIOL
     Dosage: NK MG, NK
  9. ALLOPURINOL. [Concomitant]
     Active Substance: ALLOPURINOL
     Dosage: 100 MILLIGRAM DAILY;  0-0-1-0
     Route: 048
  10. PHENPROCOUMON [Suspect]
     Active Substance: PHENPROCOUMON
     Dosage: 3 MG, BY VALUE
     Route: 048
  11. TORASEMID [Concomitant]
     Active Substance: TORSEMIDE
     Dosage: .5 DOSAGE FORMS DAILY; 10 MG, 0.5-0-0-0
     Route: 048
  12. DIGITOXIN [Suspect]
     Active Substance: DIGITOXIN
     Dosage: .05 MILLIGRAM DAILY; 1-0-0-0
     Route: 048
  13. RISPERIDON [Concomitant]
     Active Substance: RISPERIDONE
     Dosage: .5 MILLIGRAM DAILY; 0-0-1-0
     Route: 048

REACTIONS (4)
  - Bradycardia [Unknown]
  - Therapeutic drug monitoring analysis incorrectly performed [Unknown]
  - General physical health deterioration [Unknown]
  - Therapeutic drug monitoring analysis not performed [Unknown]
